FAERS Safety Report 5054275-9 (Version None)
Quarter: 2006Q3

REPORT INFORMATION
  Report Type: 
  Country: None (occurrence: None)
  Receive Date: 20060713
  Receipt Date: 20060705
  Transmission Date: 20061208
  Serious: Yes (Other)
  Sender: FDA-Public Use
  Company Number: 2006084384

PATIENT
  Age: 15 Month
  Sex: Male

DRUGS (1)
  1. MINOXIDIL [Suspect]
     Indication: ACCIDENTAL EXPOSURE
     Dosage: ORAL
     Route: 048
     Dates: start: 20060703, end: 20060703

REACTIONS (6)
  - ACCIDENTAL DRUG INTAKE BY CHILD [None]
  - COORDINATION ABNORMAL [None]
  - DIZZINESS [None]
  - HEART RATE INCREASED [None]
  - PYREXIA [None]
  - VOMITING [None]
